FAERS Safety Report 22231578 (Version 2)
Quarter: 2024Q3

REPORT INFORMATION
  Report Type: Spontaneous
  Country: FR (occurrence: FR)
  Receive Date: 20230420
  Receipt Date: 20240805
  Transmission Date: 20241016
  Serious: Yes (Hospitalization, Other)
  Sender: BAXTER
  Company Number: None

PATIENT
  Age: 14 Year
  Sex: Female
  Weight: 54 kg

DRUGS (7)
  1. IFOSFAMIDE [Suspect]
     Active Substance: IFOSFAMIDE
     Indication: Osteosarcoma
     Dosage: 4460 MG, CYCLICAL, D1-D4
     Route: 042
     Dates: start: 20230308, end: 20230308
  2. MESNA [Suspect]
     Active Substance: MESNA
     Dosage: UNK
     Route: 065
  3. PENTACARINAT [Concomitant]
     Active Substance: PENTAMIDINE ISETHIONATE
     Dosage: 1 DOSAGE FORM, Q1M
     Route: 065
     Dates: start: 20230305, end: 20230305
  4. LOVENOX [Concomitant]
     Active Substance: ENOXAPARIN SODIUM
     Dosage: 4000 IU, QD, ANTI-FACTOR XA/0.4 ML, FORMULATION: SOLUTION FOR INJECTION IN A CARTRIDGE
     Route: 058
     Dates: end: 20230306
  5. METHOTREXATE [Concomitant]
     Active Substance: METHOTREXATE
     Indication: Osteosarcoma
     Dosage: UNK
     Route: 042
     Dates: start: 20230302, end: 20230302
  6. ETOPOSIDE [Concomitant]
     Active Substance: ETOPOSIDE
     Indication: Osteosarcoma
     Dosage: 110 MG, CYCLICAL, D1-D4
     Route: 042
     Dates: start: 20230308, end: 20230308
  7. CALCIUM CARBONATE\CHOLECALCIFEROL [Concomitant]
     Active Substance: CALCIUM CARBONATE\CHOLECALCIFEROL
     Dosage: UNK
     Route: 048

REACTIONS (2)
  - Renal tubular disorder [Recovering/Resolving]
  - Cystitis haemorrhagic [Recovering/Resolving]

NARRATIVE: CASE EVENT DATE: 20230310
